FAERS Safety Report 16083941 (Version 2)
Quarter: 2019Q2

REPORT INFORMATION
  Report Type: Spontaneous
  Country: JP (occurrence: JP)
  Receive Date: 20190318
  Receipt Date: 20190411
  Transmission Date: 20190711
  Serious: Yes (Hospitalization)
  Sender: FDA-Public Use
  Company Number: JP-SA-2019SA070862

PATIENT
  Age: 6 Decade
  Sex: Male
  Weight: 49 kg

DRUGS (3)
  1. BEVACIZUMAB. [Suspect]
     Active Substance: BEVACIZUMAB
     Indication: COLON CANCER
     Dosage: UNK UNK, UNK
     Route: 065
  2. CAPECITABINE. [Suspect]
     Active Substance: CAPECITABINE
     Indication: COLON CANCER
     Dosage: UNK UNK, UNK
     Route: 065
  3. ELPLAT [Suspect]
     Active Substance: OXALIPLATIN
     Indication: COLON CANCER
     Dosage: UNK UNK, QD
     Route: 041

REACTIONS (5)
  - Depression [Unknown]
  - Disease progression [Unknown]
  - Malnutrition [Unknown]
  - Hypoaesthesia [Recovering/Resolving]
  - Neuropathy peripheral [Recovering/Resolving]
